FAERS Safety Report 25761474 (Version 1)
Quarter: 2025Q3

REPORT INFORMATION
  Report Type: Spontaneous
  Country: US (occurrence: US)
  Receive Date: 20250904
  Receipt Date: 20250904
  Transmission Date: 20251020
  Serious: No
  Sender: MEDEXUS PHARMA
  Company Number: US-MEDEXUS PHARMA, INC.-2025MED00129

PATIENT
  Sex: Male

DRUGS (4)
  1. RASUVO [Suspect]
     Active Substance: METHOTREXATE SODIUM
     Indication: Rheumatoid arthritis
     Dosage: 22.5 MG, 1X/WEEK, INTO THIGH, ON MONDAY
     Dates: start: 2023
  2. UNSPECIFIED INGREDIENT [Concomitant]
     Active Substance: UNSPECIFIED INGREDIENT
  3. ASPIRIN [Concomitant]
     Active Substance: ASPIRIN
  4. UNSPECIFIED INGREDIENT [Concomitant]
     Active Substance: UNSPECIFIED INGREDIENT

REACTIONS (4)
  - Injection site haemorrhage [Recovered/Resolved]
  - Exposure via skin contact [Recovered/Resolved]
  - Product dose omission issue [Not Recovered/Not Resolved]
  - Device leakage [Recovered/Resolved]

NARRATIVE: CASE EVENT DATE: 20250101
